FAERS Safety Report 4399830-4 (Version None)
Quarter: 2004Q3

REPORT INFORMATION
  Report Type: 
  Country: None (occurrence: None)
  Receive Date: 20040714
  Receipt Date: 20040629
  Transmission Date: 20050211
  Serious: Yes (Hospitalization)
  Sender: FDA-Public Use
  Company Number: AU_040707884

PATIENT
  Age: 28 Month
  Sex: Female

DRUGS (1)
  1. KEFLEX [Suspect]
     Indication: INFECTION
     Dosage: 3 ML/1 DAY
     Dates: start: 20020101

REACTIONS (1)
  - BODY TEMPERATURE INCREASED [None]
